FAERS Safety Report 7413460-9 (Version None)
Quarter: 2011Q2

REPORT INFORMATION
  Report Type: 
  Country: None (occurrence: None)
  Receive Date: 20110413
  Receipt Date: 20110404
  Transmission Date: 20111010
  Serious: Yes (Hospitalization)
  Sender: FDA-Public Use
  Company Number: PHHY2010US80986

PATIENT
  Sex: Female
  Weight: 66 kg

DRUGS (11)
  1. EXJADE [Suspect]
     Dosage: 500 MG, UNK
  2. FOLIC ACID [Concomitant]
     Dosage: 1 MG, DAILY
     Route: 048
  3. OMEPRAZOLE [Concomitant]
  4. NITROFURANTOIN [Concomitant]
     Dosage: 50 MG, UNK
  5. CEFACLOR [Concomitant]
     Dosage: 500 MG, UNK
  6. COUMADIN [Concomitant]
     Dosage: 2 MG, UNK
  7. VITAMIN B-12 [Concomitant]
  8. TOPROL-XL [Concomitant]
     Dosage: 25 MG, UNK
  9. EXJADE [Suspect]
     Indication: IRON METABOLISM DISORDER
     Dosage: 1000 MG, QD
     Route: 048
     Dates: start: 20100612, end: 20101011
  10. RECLAST [Concomitant]
     Dosage: 5 MG/100 ML
  11. CITRACAL + D [Concomitant]
     Dosage: 315 MG, UNK

REACTIONS (8)
  - HEPATIC CIRRHOSIS [None]
  - HEPATIC STEATOSIS [None]
  - ALPHA 1 FOETOPROTEIN INCREASED [None]
  - CHOLELITHIASIS [None]
  - HEPATIC NEOPLASM [None]
  - CHEST DISCOMFORT [None]
  - NEPHROLITHIASIS [None]
  - DYSPNOEA [None]
